FAERS Safety Report 8596469-1 (Version None)
Quarter: 2012Q3

REPORT INFORMATION
  Report Type: 
  Country: None (occurrence: None)
  Receive Date: 20120815
  Receipt Date: 20120807
  Transmission Date: 20120928
  Serious: No
  Sender: FDA-Public Use
  Company Number: AU-ACTELION-A-CH2012-68897

PATIENT
  Age: 26 Year
  Sex: Female

DRUGS (2)
  1. TRACLEER [Suspect]
     Indication: PULMONARY ARTERIAL HYPERTENSION
     Route: 048
  2. SILDENAFIL [Concomitant]

REACTIONS (3)
  - CAESAREAN SECTION [None]
  - PREGNANCY [None]
  - NORMAL NEWBORN [None]
